FAERS Safety Report 23649413 (Version 1)
Quarter: 2024Q1

REPORT INFORMATION
  Report Type: Spontaneous
  Country: CN (occurrence: CN)
  Receive Date: 20240319
  Receipt Date: 20240319
  Transmission Date: 20240410
  Serious: Yes (Other)
  Sender: FDA-Public Use
  Company Number: CN-002147023-NVSC2024CN055672

PATIENT
  Age: 83 Year
  Sex: Male

DRUGS (7)
  1. DABRAFENIB [Suspect]
     Active Substance: DABRAFENIB
     Indication: BRAF V600E mutation positive
     Dosage: UNK
     Route: 048
     Dates: start: 20220629
  2. DABRAFENIB [Suspect]
     Active Substance: DABRAFENIB
     Dosage: UNK (2 PILLS IN THE MORNING AND 1 PILL IN THE EVENING)
     Route: 048
     Dates: start: 202210
  3. DABRAFENIB [Suspect]
     Active Substance: DABRAFENIB
     Dosage: UNK
     Route: 048
     Dates: start: 202312
  4. DABRAFENIB [Suspect]
     Active Substance: DABRAFENIB
     Dosage: 1 DOSAGE FORM, BID
     Route: 048
  5. TRAMETINIB [Suspect]
     Active Substance: TRAMETINIB
     Indication: BRAF V600E mutation positive
     Dosage: 1 DOSAGE FORM
     Route: 048
     Dates: start: 20220629
  6. TRAMETINIB [Suspect]
     Active Substance: TRAMETINIB
     Dosage: UNK
     Route: 048
     Dates: start: 202312
  7. TRAMETINIB [Suspect]
     Active Substance: TRAMETINIB
     Dosage: 1 DOSAGE FORM, QD
     Route: 048

REACTIONS (10)
  - Myelosuppression [Unknown]
  - Disease progression [Unknown]
  - Hydrothorax [Recovering/Resolving]
  - Chest discomfort [Unknown]
  - Protein urine present [Unknown]
  - Carcinoembryonic antigen [Recovering/Resolving]
  - Pyrexia [Recovered/Resolved]
  - Pyrexia [Unknown]
  - Diarrhoea [Recovering/Resolving]
  - Oedema peripheral [Unknown]

NARRATIVE: CASE EVENT DATE: 20220829
